FAERS Safety Report 20565377 (Version 1)
Quarter: 2022Q1

REPORT INFORMATION
  Report Type: Spontaneous
  Country: AU (occurrence: AU)
  Receive Date: 20220308
  Receipt Date: 20220308
  Transmission Date: 20220423
  Serious: Yes (Other)
  Sender: FDA-Public Use
  Company Number: AU-MYLANLABS-2021M1012994

PATIENT
  Age: 53 Year
  Sex: Female

DRUGS (1)
  1. CLOZARIL [Suspect]
     Active Substance: CLOZAPINE
     Indication: Schizophrenia
     Dosage: 175 MILLIGRAM
     Route: 048
     Dates: start: 19950721

REACTIONS (3)
  - Mean cell haemoglobin decreased [Recovered/Resolved]
  - Eosinopenia [Not Recovered/Not Resolved]
  - Hypochromasia [Unknown]

NARRATIVE: CASE EVENT DATE: 20201201
